FAERS Safety Report 14954019 (Version 4)
Quarter: 2018Q2

REPORT INFORMATION
  Report Type: Report from Study
  Country: US (occurrence: DE)
  Receive Date: 20180530
  Receipt Date: 20180626
  Transmission Date: 20180711
  Serious: Yes (Death, Life-Threatening, Hospitalization, Other)
  Sender: FDA-Public Use
  Company Number: US-PFIZER INC-2003041703

PATIENT
  Age: 73 Year
  Sex: Female
  Weight: 60 kg

DRUGS (38)
  1. DIGOXIN. [Suspect]
     Active Substance: DIGOXIN
     Indication: CORONARY ARTERY DISEASE
     Dosage: 0.2 MG, 1X/DAY
     Route: 048
     Dates: start: 20010703, end: 20010714
  2. HALDOL [Suspect]
     Active Substance: HALOPERIDOL
     Dosage: 3 GTT, 1X/DAY
     Route: 048
     Dates: start: 20010713, end: 20010714
  3. DECORTIN [Suspect]
     Active Substance: PREDNISONE
     Indication: DYSPNOEA
     Dosage: 50 MG, 1X/DAY
     Route: 042
     Dates: start: 20010703, end: 20010703
  4. NORVASC [Suspect]
     Active Substance: AMLODIPINE BESYLATE
     Indication: CORONARY ARTERY DISEASE
     Dosage: BID
     Route: 048
     Dates: start: 20010703, end: 20010714
  5. FUROSEMIDE. [Suspect]
     Active Substance: FUROSEMIDE
     Indication: HYPERTENSION
     Dosage: 80 MG, 1X/DAY
     Route: 042
     Dates: start: 20010703, end: 20010714
  6. AMPHOTERICIN B. [Suspect]
     Active Substance: AMPHOTERICIN B
     Indication: PROPHYLAXIS
     Dosage: 8 DF, 1X/DAY
     Route: 048
     Dates: start: 20010703, end: 20010714
  7. PERENTEROL [Suspect]
     Active Substance: SACCHAROMYCES CEREVISIAE
     Indication: DIARRHOEA
  8. POTASSIUM CHLORIDE. [Concomitant]
     Active Substance: POTASSIUM CHLORIDE
     Indication: ELECTROLYTE IMBALANCE
     Route: 048
     Dates: start: 20010703, end: 20010714
  9. BROMAZEPAM [Concomitant]
     Active Substance: BROMAZEPAM
     Indication: RESTLESSNESS
     Route: 048
     Dates: start: 20010713, end: 20010714
  10. TRANXENE [Suspect]
     Active Substance: CLORAZEPATE DIPOTASSIUM
     Indication: RESTLESSNESS
     Dosage: 10 MG, 1X/DAY
     Route: 048
     Dates: start: 20010710, end: 20010714
  11. PREDNISOLONE SODIUM SUCCINATE [Suspect]
     Active Substance: PREDNISOLONE SODIUM SUCCINATE
     Indication: DYSPNOEA
     Dosage: 50 MG, 1X/DAY
     Route: 042
     Dates: start: 20010703, end: 20010703
  12. CEFTRIAXONE SODIUM. [Suspect]
     Active Substance: CEFTRIAXONE SODIUM
     Indication: PYREXIA
     Dosage: 2 G, 1X/DAY
     Route: 042
     Dates: start: 20010629, end: 20010703
  13. MELPERONE HYDROCHLORIDE [Suspect]
     Active Substance: MELPERONE HYDROCHLORIDE
     Indication: RESTLESSNESS
     Dosage: 16 ML, DAILY
     Route: 048
     Dates: start: 20010706, end: 20010712
  14. CARBIMAZOLE [Concomitant]
     Active Substance: CARBIMAZOLE
     Indication: HYPERTHYROIDISM
     Dosage: 20 MG, 1X/DAY
     Route: 048
     Dates: start: 20010621, end: 20010714
  15. RAMIPRIL. [Concomitant]
     Active Substance: RAMIPRIL
     Indication: CORONARY ARTERY DISEASE
     Dosage: 5 MG, 1X/DAY
     Route: 048
     Dates: end: 20010714
  16. MONO MACK [Suspect]
     Active Substance: ISOSORBIDE MONONITRATE
     Indication: CORONARY ARTERY DISEASE
     Route: 048
     Dates: start: 20010703, end: 20010714
  17. SORTIS [Suspect]
     Active Substance: ATORVASTATIN
     Indication: HYPERLIPIDAEMIA
     Dosage: 20 MG, UNK
     Route: 048
     Dates: end: 20010703
  18. CIPROFLOXACIN HYDROCHLORIDE. [Suspect]
     Active Substance: CIPROFLOXACIN HYDROCHLORIDE
     Indication: CHOLECYSTITIS
     Dosage: 500 MG, 1X/DAY
     Route: 048
     Dates: start: 20010620, end: 20010628
  19. PARACETAMOL [Suspect]
     Active Substance: ACETAMINOPHEN
     Indication: PAIN
     Dosage: 500 MG, 1X/DAY
     Route: 048
     Dates: start: 20010711, end: 20010711
  20. DIAZEPAM. [Suspect]
     Active Substance: DIAZEPAM
     Indication: RESTLESSNESS
     Dosage: 15 MG, UNK
     Route: 048
     Dates: start: 20010703, end: 20010703
  21. INSULIN GLARGINE [Concomitant]
     Active Substance: INSULIN GLARGINE
     Indication: DIABETES MELLITUS
     Dosage: 16 IU, 1X/DAY
     Route: 058
     Dates: end: 20010629
  22. ASPIRIN /00002701/ [Suspect]
     Active Substance: ASPIRIN
     Indication: CORONARY ARTERY DISEASE
     Dosage: 100 MG, DAILY
     Route: 048
     Dates: end: 20010714
  23. MOLSIDOMINE [Suspect]
     Active Substance: MOLSIDOMINE
     Indication: CORONARY ARTERY DISEASE
     Route: 048
     Dates: start: 20010703, end: 20010714
  24. PLAVIX [Suspect]
     Active Substance: CLOPIDOGREL BISULFATE
     Indication: CORONARY ARTERY DISEASE
     Route: 048
     Dates: start: 20010704, end: 20010714
  25. GLIMEPIRIDE. [Concomitant]
     Active Substance: GLIMEPIRIDE
     Indication: DIABETES MELLITUS
     Dosage: 3 MG, 1X/DAY
     Route: 048
     Dates: end: 20010703
  26. METFORMIN HCL [Concomitant]
     Active Substance: METFORMIN HYDROCHLORIDE
     Indication: DIABETES MELLITUS
     Dosage: 750 MG, 1X/DAY
     Route: 048
     Dates: end: 20010714
  27. METOCLOPRAMIDE. [Suspect]
     Active Substance: METOCLOPRAMIDE
     Indication: NAUSEA
     Dosage: 75 GTT, 1X/DAY
     Route: 048
     Dates: start: 20010704, end: 20010712
  28. METOLAZONE. [Suspect]
     Active Substance: METOLAZONE
     Indication: HYPERTENSION
     Route: 048
     Dates: start: 20010712, end: 20010713
  29. NOVODIGAL /00017701/ [Suspect]
     Active Substance: DIGOXIN
     Indication: CORONARY ARTERY DISEASE
     Dosage: UNK
     Route: 048
     Dates: end: 20010714
  30. PREDNISONE. [Concomitant]
     Active Substance: PREDNISONE
     Route: 042
     Dates: start: 20010703, end: 20010703
  31. YEAST DRIED [Concomitant]
     Active Substance: YEAST
     Route: 048
     Dates: start: 20010711, end: 20010714
  32. CAPTOPRIL. [Concomitant]
     Active Substance: CAPTOPRIL
     Indication: CORONARY ARTERY DISEASE
     Route: 048
     Dates: end: 20010714
  33. ATORVASTATIN CALCIUM. [Concomitant]
     Active Substance: ATORVASTATIN CALCIUM
     Indication: HYPERLIPIDAEMIA
     Dosage: 20 MG, 1X/DAY
     Route: 048
     Dates: start: 20010703
  34. DALTEPARIN SODIUM [Suspect]
     Active Substance: DALTEPARIN SODIUM
     Indication: THROMBOSIS PROPHYLAXIS
     Dosage: 2500 IU, 1X/DAY
     Route: 058
     Dates: start: 20010703, end: 20010714
  35. HEPARIN SODIUM. [Concomitant]
     Active Substance: HEPARIN SODIUM
     Route: 058
     Dates: start: 20010703, end: 20010714
  36. BISOPROLOL FUMARATE. [Concomitant]
     Active Substance: BISOPROLOL FUMARATE
     Indication: CORONARY ARTERY DISEASE
     Dosage: 5 MG, 1X/DAY
     Route: 048
     Dates: end: 20010714
  37. PANTOPRAZOLE [Concomitant]
     Active Substance: PANTOPRAZOLE
     Indication: PROPHYLAXIS
     Dosage: 40 MG, 1X/DAY
     Route: 048
     Dates: end: 20010714
  38. SODIUM PERCHLORATE [Concomitant]
     Active Substance: SODIUM PERCHLORATE
     Indication: HYPERTHYROIDISM
     Dosage: 60 GTT, 1X/DAY
     Route: 048
     Dates: start: 20010618, end: 20010714

REACTIONS (21)
  - Multiple organ dysfunction syndrome [Fatal]
  - Cardiac failure [Unknown]
  - Cholecystitis [Unknown]
  - Hyperthyroidism [Unknown]
  - Cholelithiasis [Unknown]
  - Pain [Unknown]
  - Pyrexia [Unknown]
  - Diarrhoea [Unknown]
  - Prophylaxis against gastrointestinal ulcer [Unknown]
  - Lung disorder [Fatal]
  - Antifungal prophylaxis [Unknown]
  - Restlessness [Unknown]
  - Dyspnoea [Unknown]
  - Thrombosis prophylaxis [Unknown]
  - Respiratory disorder [Fatal]
  - Myocardial infarction [Unknown]
  - Hypertension [Unknown]
  - Nausea [Unknown]
  - Toxic epidermal necrolysis [Fatal]
  - Coronary artery disease [Unknown]
  - Electrolyte imbalance [Unknown]

NARRATIVE: CASE EVENT DATE: 20010606
